FAERS Safety Report 12263756 (Version 1)
Quarter: 2016Q2

REPORT INFORMATION
  Report Type: Report from Study
  Country: DE (occurrence: DE)
  Receive Date: 20160413
  Receipt Date: 20160413
  Transmission Date: 20160815
  Serious: Yes (Death, Hospitalization)
  Sender: FDA-Public Use
  Company Number: PHHO2010DE023534

PATIENT
  Age: 70 Year
  Sex: Female
  Weight: 53 kg

DRUGS (1)
  1. CHLORAMBUCIL [Suspect]
     Active Substance: CHLORAMBUCIL
     Indication: CHRONIC LYMPHOCYTIC LEUKAEMIA
     Dosage: 10 MG/M2, CYCLIC (DAYS 1-7 EVERY 28 DAYS)
     Route: 048
     Dates: start: 20100420

REACTIONS (1)
  - Pneumococcal sepsis [Fatal]

NARRATIVE: CASE EVENT DATE: 20100501
